FAERS Safety Report 18663988 (Version 1)
Quarter: 2020Q4

REPORT INFORMATION
  Report Type: Spontaneous
  Country: DE (occurrence: DE)
  Receive Date: 20201225
  Receipt Date: 20201225
  Transmission Date: 20210114
  Serious: Yes (Other)
  Sender: FDA-Public Use
  Company Number: DE-AMGEN-DEUSP2020208344

PATIENT
  Age: 46 Year
  Sex: Female

DRUGS (6)
  1. PACLITAXEL. [Concomitant]
     Active Substance: PACLITAXEL
  2. PALBOCICLIB [Concomitant]
     Active Substance: PALBOCICLIB
  3. XGEVA [Suspect]
     Active Substance: DENOSUMAB
     Indication: METASTASES TO BONE
     Dosage: UNK
     Route: 065
     Dates: start: 201802
  4. LETROZOL [Concomitant]
     Active Substance: LETROZOLE
  5. TAMOXIFEN [Concomitant]
     Active Substance: TAMOXIFEN
  6. BEVACIZUMAB. [Suspect]
     Active Substance: BEVACIZUMAB
     Indication: BREAST CANCER METASTATIC
     Dosage: UNK
     Route: 065
     Dates: start: 202001

REACTIONS (6)
  - Off label use [Unknown]
  - Anaemia [Unknown]
  - Breast cancer metastatic [Recovering/Resolving]
  - Nausea [Unknown]
  - Platelet count abnormal [Unknown]
  - Neutropenia [Unknown]

NARRATIVE: CASE EVENT DATE: 2020
